FAERS Safety Report 9417794 (Version 5)
Quarter: 2013Q3

REPORT INFORMATION
  Report Type: Report from Study
  Country: US (occurrence: US)
  Receive Date: 20130724
  Receipt Date: 20130816
  Transmission Date: 20140515
  Serious: Yes (Hospitalization)
  Sender: FDA-Public Use
  Company Number: US-GLAXOSMITHKLINE-B0909838A

PATIENT
  Age: 54 Year
  Sex: Female
  Weight: 45.9 kg

DRUGS (11)
  1. FLUTICASONE FUROATE [Suspect]
     Indication: CHRONIC OBSTRUCTIVE PULMONARY DISEASE
     Dates: start: 20130122, end: 20130524
  2. FLUTICASONE FUROATE [Suspect]
     Dates: start: 20130530
  3. WELLBUTRIN [Suspect]
     Indication: DEPRESSION
     Dosage: 150MG PER DAY
     Route: 048
     Dates: start: 201201, end: 20130525
  4. ZOLPIDEM [Suspect]
     Indication: INSOMNIA
     Route: 048
     Dates: start: 2010, end: 20130524
  5. ALPRAZOLAM [Suspect]
     Indication: ANXIETY
     Dosage: .5MG PER DAY
     Route: 048
     Dates: start: 2012, end: 20130525
  6. ABILIFY [Suspect]
     Indication: DEPRESSION
     Dosage: 2MG PER DAY
     Route: 048
     Dates: start: 201201, end: 20130525
  7. PROZAC [Suspect]
     Indication: DEPRESSION
     Dosage: 40MG PER DAY
     Route: 048
     Dates: start: 2003, end: 20130525
  8. NAPROXEN [Concomitant]
     Indication: CHEST PAIN
     Route: 048
     Dates: start: 20130118
  9. ATORVASTATIN [Concomitant]
     Indication: HYPERLIPIDAEMIA
     Dosage: 20MG PER DAY
     Route: 048
     Dates: start: 2010, end: 20130424
  10. ASPIRIN [Concomitant]
     Indication: CARDIOVASCULAR EVENT PROPHYLAXIS
     Dosage: 81MG PER DAY
     Route: 048
     Dates: start: 2010, end: 20130424
  11. ALBUTEROL [Concomitant]
     Indication: CHRONIC OBSTRUCTIVE PULMONARY DISEASE
     Route: 055
     Dates: start: 2012

REACTIONS (1)
  - Suicidal behaviour [Recovered/Resolved]
